FAERS Safety Report 6299536-0 (Version None)
Quarter: 2009Q3

REPORT INFORMATION
  Report Type: 
  Country: None (occurrence: None)
  Receive Date: 20090806
  Receipt Date: 20090730
  Transmission Date: 20100115
  Serious: Yes (Other)
  Sender: FDA-Public Use
  Company Number: DE-BAYER-200923063GPV

PATIENT
  Age: 76 Year
  Sex: Male
  Weight: 62 kg

DRUGS (3)
  1. NEXAVAR [Suspect]
     Indication: HEPATIC NEOPLASM MALIGNANT
     Dosage: UNIT DOSE: 400 MG
     Route: 048
     Dates: start: 20090520, end: 20090526
  2. NOVAMINSULFON [Concomitant]
     Indication: PAIN
     Route: 048
  3. TILIDINE [Concomitant]
     Indication: PAIN
     Dosage: TOTAL DAILY DOSE: 2 DF
     Route: 048

REACTIONS (1)
  - LIVER FUNCTION TEST ABNORMAL [None]
